FAERS Safety Report 9257152 (Version 1)
Quarter: 2013Q1

REPORT INFORMATION
  Report Type: Spontaneous
  Country: US (occurrence: None)
  Receive Date: 20121212
  Receipt Date: 20121212
  Transmission Date: 20140127
  Serious: No
  Sender: FDA-Public Use
  Company Number: 1209USA000049

PATIENT
  Age: 64 Year
  Sex: Female

DRUGS (3)
  1. PEGINTRON [Suspect]
     Indication: HEPATITIS C
     Dosage: REDIPEN
     Dates: start: 20120826
  2. REBETOL [Suspect]
     Indication: HEPATITIS C
     Dates: start: 20120822
  3. VICTRELIS [Suspect]
     Indication: HEPATITIS C
     Dates: start: 20120916

REACTIONS (3)
  - Feeling cold [None]
  - Hyperchlorhydria [None]
  - Headache [None]
